FAERS Safety Report 11738282 (Version 3)
Quarter: 2017Q1

REPORT INFORMATION
  Report Type: Report from Study
  Country: KR (occurrence: KR)
  Receive Date: 20151113
  Receipt Date: 20170306
  Transmission Date: 20170428
  Serious: Yes (Hospitalization)
  Sender: FDA-Public Use
  Company Number: KR-OTSUKA-JP-2014-15403

PATIENT
  Age: 89 Year
  Sex: Male

DRUGS (13)
  1. AMOSARTAN [Concomitant]
     Indication: HYPERTENSION
     Dosage: UNK
     Route: 065
     Dates: start: 20110721
  2. ARICEPT [Concomitant]
     Active Substance: DONEPEZIL HYDROCHLORIDE
     Indication: CEREBRAL INFARCTION
     Dosage: UNK
     Route: 065
     Dates: start: 20130416
  3. FLUMETHORONE [Concomitant]
     Indication: DISTICHIASIS
     Dosage: UNK
     Route: 065
     Dates: start: 20140416
  4. DIQUAS [Concomitant]
     Active Substance: DIQUAFOSOL TETRASODIUM
     Indication: DISTICHIASIS
     Dosage: UNK
     Route: 065
     Dates: start: 20140513
  5. *ASPIRIN [Suspect]
     Active Substance: ASPIRIN
     Indication: CEREBRAL INFARCTION
     Dosage: 100 MG, QD
     Route: 048
     Dates: start: 20110331, end: 20150414
  6. DICAMAX [Concomitant]
     Indication: OSTEOPENIA
     Dosage: UNK
     Route: 065
     Dates: start: 20110401
  7. ENAFON [Concomitant]
     Indication: HYPOAESTHESIA
     Dosage: UNK
     Route: 065
     Dates: start: 20140114
  8. PROBUCOL [Suspect]
     Active Substance: PROBUCOL
     Indication: CEREBRAL INFARCTION
     Dosage: 250 MG, BID
     Route: 048
     Dates: start: 20110331, end: 20150414
  9. TARIVID [Concomitant]
     Active Substance: OFLOXACIN
     Indication: DISTICHIASIS
     Dosage: UNK
     Route: 065
     Dates: start: 20140416
  10. MUCOSTA [Concomitant]
     Active Substance: REBAMIPIDE
     Indication: CEREBRAL INFARCTION
     Dosage: UNK
     Route: 065
     Dates: start: 20110325
  11. LIPITOR [Concomitant]
     Active Substance: ATORVASTATIN CALCIUM
     Indication: HYPERLIPIDAEMIA
     Dosage: UNK
     Route: 065
     Dates: start: 20120406
  12. CLANZA CR [Concomitant]
     Active Substance: ACECLOFENAC
     Indication: PARAESTHESIA
     Dosage: UNK
     Route: 065
     Dates: start: 20121022
  13. HARNAL [Concomitant]
     Active Substance: TAMSULOSIN HYDROCHLORIDE
     Indication: BENIGN PROSTATIC HYPERPLASIA
     Dosage: UNK
     Route: 065
     Dates: start: 20140722

REACTIONS (2)
  - Intermittent claudication [Recovered/Resolved]
  - Pain in extremity [Recovered/Resolved]

NARRATIVE: CASE EVENT DATE: 20140127
